FAERS Safety Report 6959493-8 (Version None)
Quarter: 2010Q3

REPORT INFORMATION
  Report Type: 
  Country: None (occurrence: None)
  Receive Date: 20100827
  Receipt Date: 20100824
  Transmission Date: 20110219
  Serious: Yes (Other)
  Sender: FDA-Public Use
  Company Number: GP-10-08-0023

PATIENT
  Age: 59 Year
  Sex: Male

DRUGS (9)
  1. ROPINIROLE [Suspect]
     Indication: PARKINSON'S DISEASE
     Dates: start: 20030110
  2. CLOMIPRAMINE [Concomitant]
  3. ENTACAPONE [Concomitant]
  4. LEVODOPA [Concomitant]
  5. MADOPAR [Concomitant]
  6. RASAGILINE [Concomitant]
  7. MESYLATE [Concomitant]
  8. SINEMET [Concomitant]
  9. STALEVO 100 [Concomitant]

REACTIONS (20)
  - COMPULSIONS [None]
  - DEPRESSION [None]
  - DOPAMINE DYSREGULATION SYNDROME [None]
  - DRUG ABUSE [None]
  - EMOTIONAL DISTRESS [None]
  - FORMICATION [None]
  - GENERAL PHYSICAL HEALTH DETERIORATION [None]
  - HYPERSEXUALITY [None]
  - INTENTIONAL OVERDOSE [None]
  - MOBILITY DECREASED [None]
  - MUSCULOSKELETAL STIFFNESS [None]
  - MYALGIA [None]
  - OBSESSIVE THOUGHTS [None]
  - PANIC ATTACK [None]
  - PATHOLOGICAL GAMBLING [None]
  - SLEEP DISORDER [None]
  - SOMNOLENCE [None]
  - SUICIDAL BEHAVIOUR [None]
  - SUICIDE ATTEMPT [None]
  - TREMOR [None]
